FAERS Safety Report 23497164 (Version 5)
Quarter: 2025Q3

REPORT INFORMATION
  Report Type: Spontaneous
  Country: GB (occurrence: GB)
  Receive Date: 20240208
  Receipt Date: 20250904
  Transmission Date: 20251021
  Serious: Yes (Death, Hospitalization, Other)
  Sender: TEVA
  Company Number: GB-MYLANLABS-2019M1117808_DUP

PATIENT
  Age: 59 Year
  Sex: Male
  Weight: 62 kg

DRUGS (60)
  1. RISPERIDONE [Suspect]
     Active Substance: RISPERIDONE
     Indication: Schizophrenia
     Dosage: 4.000MG QD
     Route: 065
  2. RISPERIDONE [Suspect]
     Active Substance: RISPERIDONE
     Indication: Schizophrenia
     Dosage: 6 MG, QD (3MG BID)
     Route: 065
  3. RISPERIDONE [Suspect]
     Active Substance: RISPERIDONE
     Indication: Schizophrenia
     Dosage: 1 G, QD
     Route: 065
  4. RISPERIDONE [Suspect]
     Active Substance: RISPERIDONE
     Indication: Schizophrenia
     Route: 065
  5. RISPERIDONE [Suspect]
     Active Substance: RISPERIDONE
     Indication: Schizophrenia
     Dosage: 2 MG
     Route: 065
  6. CLOZAPINE [Suspect]
     Active Substance: CLOZAPINE
     Indication: Schizophrenia
     Dosage: 400 MG, BID
     Route: 065
  7. CLOZAPINE [Suspect]
     Active Substance: CLOZAPINE
     Indication: Schizophrenia
     Route: 065
  8. CLOZAPINE [Suspect]
     Active Substance: CLOZAPINE
     Indication: Schizophrenia
     Dosage: 50 MG, QD, MIDDAY
     Route: 065
  9. CLOZAPINE [Suspect]
     Active Substance: CLOZAPINE
     Indication: Schizophrenia
     Dosage: 275 MG, QD
     Route: 065
  10. CLOZAPINE [Suspect]
     Active Substance: CLOZAPINE
     Indication: Schizophrenia
     Route: 065
     Dates: end: 20191223
  11. CLOZAPINE [Suspect]
     Active Substance: CLOZAPINE
     Indication: Schizophrenia
     Dosage: 300 MG, QD (PM)
     Route: 065
  12. CLOZAPINE [Suspect]
     Active Substance: CLOZAPINE
     Indication: Schizophrenia
     Dosage: 400.000MG QD
     Route: 065
  13. CLOZAPINE [Suspect]
     Active Substance: CLOZAPINE
     Indication: Schizophrenia
     Dosage: 200 MILLIGRAM, TWO TIMES A DAY 200 MG, BID
     Route: 048
  14. CHLORPROMAZINE [Suspect]
     Active Substance: CHLORPROMAZINE
     Indication: Schizophrenia
     Route: 065
  15. CHLORPROMAZINE [Suspect]
     Active Substance: CHLORPROMAZINE
     Indication: Schizophrenia
     Route: 065
  16. CHLORPROMAZINE [Suspect]
     Active Substance: CHLORPROMAZINE
     Indication: Schizophrenia
     Route: 065
  17. PACLITAXEL [Suspect]
     Active Substance: PACLITAXEL
     Indication: Breast cancer metastatic
     Dosage: (CUMULATIVE DOSE: 428.57 MG) 120 MG, WEEKLY (1/W)
     Route: 042
     Dates: start: 20151111
  18. PACLITAXEL [Suspect]
     Active Substance: PACLITAXEL
     Indication: Breast cancer metastatic
     Dosage: 150 MG, QW
     Route: 042
  19. PACLITAXEL [Suspect]
     Active Substance: PACLITAXEL
     Indication: Breast cancer metastatic
     Dosage: (CUMULATIVE DOSE: 428.57 MG) 120 MG, WEEKLY (1/W)
     Route: 042
     Dates: start: 20151111
  20. PACLITAXEL [Suspect]
     Active Substance: PACLITAXEL
     Indication: Breast cancer metastatic
     Route: 065
     Dates: start: 20151111, end: 20151222
  21. PACLITAXEL [Suspect]
     Active Substance: PACLITAXEL
     Indication: Breast cancer metastatic
     Dosage: 120.000MG QW
     Route: 065
     Dates: start: 20151111
  22. PACLITAXEL [Suspect]
     Active Substance: PACLITAXEL
     Indication: Breast cancer metastatic
     Dosage: 120 MG, QW
     Route: 065
     Dates: start: 20151223, end: 20151223
  23. ZUCLOPENTHIXOL HYDROCHLORIDE [Suspect]
     Active Substance: ZUCLOPENTHIXOL HYDROCHLORIDE
     Indication: Schizophrenia
     Route: 065
  24. ZUCLOPENTHIXOL HYDROCHLORIDE [Suspect]
     Active Substance: ZUCLOPENTHIXOL HYDROCHLORIDE
     Indication: Schizophrenia
     Dosage: 400 MG, QW
     Route: 065
     Dates: end: 20040601
  25. ZUCLOPENTHIXOL HYDROCHLORIDE [Suspect]
     Active Substance: ZUCLOPENTHIXOL HYDROCHLORIDE
     Indication: Schizophrenia
     Route: 065
  26. ZUCLOPENTHIXOL HYDROCHLORIDE [Suspect]
     Active Substance: ZUCLOPENTHIXOL HYDROCHLORIDE
     Indication: Schizophrenia
     Route: 030
  27. TRASTUZUMAB [Suspect]
     Active Substance: TRASTUZUMAB
     Indication: Breast cancer metastatic
     Dosage: 420 MG, Q3W (CUMULATIVE DOSE: 820.83 MG)
     Route: 065
  28. TRASTUZUMAB [Suspect]
     Active Substance: TRASTUZUMAB
     Indication: Breast cancer metastatic
     Dosage: 420 MG, Q3W
     Route: 065
  29. TRASTUZUMAB [Suspect]
     Active Substance: TRASTUZUMAB
     Indication: Breast cancer metastatic
     Dosage: 840 MG, QW
     Route: 065
  30. TRASTUZUMAB [Suspect]
     Active Substance: TRASTUZUMAB
     Indication: Breast cancer metastatic
     Route: 065
     Dates: start: 20150930
  31. TRASTUZUMAB [Suspect]
     Active Substance: TRASTUZUMAB
     Indication: Breast cancer metastatic
     Route: 042
     Dates: start: 20150930
  32. TRASTUZUMAB [Suspect]
     Active Substance: TRASTUZUMAB
     Indication: Breast cancer metastatic
     Dosage: 609 MG, Q3W (CUMULATIVE DOSE: 929.208333MG)
     Route: 042
     Dates: start: 20150930
  33. DOCETAXEL [Suspect]
     Active Substance: DOCETAXEL
     Indication: Breast cancer metastatic
     Dosage: 110 MG, Q3W
     Route: 042
     Dates: start: 20150930, end: 20151021
  34. DOCETAXEL [Suspect]
     Active Substance: DOCETAXEL
     Indication: Breast cancer metastatic
     Route: 065
     Dates: start: 20151222
  35. DOCETAXEL [Suspect]
     Active Substance: DOCETAXEL
     Indication: Breast cancer metastatic
     Route: 065
     Dates: start: 20151222
  36. HALOPERIDOL [Suspect]
     Active Substance: HALOPERIDOL
     Indication: Schizophrenia
     Dosage: 20 MILLIGRAM, QD (ADDITIONAL INFORMATION ON DRUG (CODED): MEDICATION ERROR, OFF LABEL USE, OVERDOSE)
     Route: 048
  37. HALOPERIDOL [Suspect]
     Active Substance: HALOPERIDOL
     Indication: Schizophrenia
     Dosage: 5 MG, BID
     Route: 048
  38. HALOPERIDOL [Suspect]
     Active Substance: HALOPERIDOL
     Indication: Schizophrenia
     Dosage: 5 MILLIGRAM, BID
     Route: 048
  39. HALOPERIDOL [Suspect]
     Active Substance: HALOPERIDOL
     Indication: Schizophrenia
     Dosage: 10 MILLIGRAM, BID
     Route: 048
  40. AMOXICILLIN\CLAVULANATE POTASSIUM [Concomitant]
     Active Substance: AMOXICILLIN\CLAVULANATE POTASSIUM
     Indication: Febrile neutropenia
     Dosage: 625 MG, QID
     Route: 065
     Dates: start: 20151111
  41. AMOXICILLIN\CLAVULANATE POTASSIUM [Concomitant]
     Active Substance: AMOXICILLIN\CLAVULANATE POTASSIUM
     Indication: Febrile neutropenia
     Dosage: 625 MG, QID
     Route: 065
     Dates: start: 20151122
  42. AMOXICILLIN\CLAVULANATE POTASSIUM [Concomitant]
     Active Substance: AMOXICILLIN\CLAVULANATE POTASSIUM
     Indication: Febrile neutropenia
     Dosage: 625MG (EVERY 0.33 DAYS, CUMULATIVE DOSEL16875)
     Route: 065
     Dates: start: 20151122, end: 20151125
  43. AMOXICILLIN\CLAVULANATE POTASSIUM [Concomitant]
     Active Substance: AMOXICILLIN\CLAVULANATE POTASSIUM
     Indication: Febrile neutropenia
     Dosage: 2500 MG, QD/625 MG, QID
     Route: 065
     Dates: start: 20151122, end: 20151122
  44. DULOXETINE [Concomitant]
     Active Substance: DULOXETINE
     Indication: Product used for unknown indication
     Route: 065
  45. DENOSUMAB [Concomitant]
     Active Substance: DENOSUMAB
     Indication: Gastrooesophageal reflux disease
     Dosage: CUMULATIVE DOSE: 118.174
     Route: 058
     Dates: start: 20150930
  46. DENOSUMAB [Concomitant]
     Active Substance: DENOSUMAB
     Indication: Gastrooesophageal reflux disease
     Route: 065
  47. DENOSUMAB [Concomitant]
     Active Substance: DENOSUMAB
     Indication: Gastrooesophageal reflux disease
     Route: 065
     Dates: start: 20150930
  48. OLANZAPINE [Suspect]
     Active Substance: OLANZAPINE
     Indication: Schizophrenia
     Dosage: 10.000MG QD
     Route: 065
  49. OLANZAPINE [Suspect]
     Active Substance: OLANZAPINE
     Indication: Schizophrenia
     Route: 065
  50. OLANZAPINE [Suspect]
     Active Substance: OLANZAPINE
     Indication: Schizophrenia
     Route: 065
  51. OLANZAPINE [Suspect]
     Active Substance: OLANZAPINE
     Indication: Schizophrenia
     Route: 065
  52. ARIPIPRAZOLE [Suspect]
     Active Substance: ARIPIPRAZOLE
     Indication: Schizophrenia
     Route: 048
  53. LORAZEPAM [Suspect]
     Active Substance: LORAZEPAM
     Indication: Schizophrenia
     Route: 048
  54. LORAZEPAM [Suspect]
     Active Substance: LORAZEPAM
     Indication: Schizophrenia
     Route: 065
  55. LORAZEPAM [Suspect]
     Active Substance: LORAZEPAM
     Indication: Schizophrenia
     Route: 048
  56. LORAZEPAM [Suspect]
     Active Substance: LORAZEPAM
     Indication: Schizophrenia
     Route: 048
  57. LITHIUM [Suspect]
     Active Substance: LITHIUM
     Indication: Product used for unknown indication
     Route: 065
  58. LITHIUM [Suspect]
     Active Substance: LITHIUM
     Indication: Product used for unknown indication
     Route: 048
  59. LITHIUM [Suspect]
     Active Substance: LITHIUM
     Indication: Product used for unknown indication
     Route: 065
  60. LITHIUM [Suspect]
     Active Substance: LITHIUM
     Indication: Product used for unknown indication
     Route: 048

REACTIONS (29)
  - Alopecia [Fatal]
  - Psychotic disorder [Fatal]
  - Neutrophil count increased [Fatal]
  - Delusion of grandeur [Fatal]
  - Seizure [Fatal]
  - Incorrect dose administered [Fatal]
  - Off label use [Fatal]
  - Hallucination, auditory [Fatal]
  - Affective disorder [Fatal]
  - Cellulitis [Fatal]
  - Platelet count decreased [Fatal]
  - COVID-19 [Fatal]
  - Rhinalgia [Fatal]
  - Lymphocyte count decreased [Fatal]
  - Leukocytosis [Fatal]
  - Mucosal inflammation [Fatal]
  - Neutropenia [Fatal]
  - Neuropathy peripheral [Fatal]
  - Extrapyramidal disorder [Fatal]
  - Disease progression [Fatal]
  - Dyspepsia [Fatal]
  - Off label use [Fatal]
  - SARS-CoV-2 test positive [Fatal]
  - Schizophrenia [Fatal]
  - Overdose [Fatal]
  - Lymphocyte count abnormal [Fatal]
  - Thrombocytopenia [Fatal]
  - Neoplasm progression [Fatal]
  - Leukocytosis [Fatal]

NARRATIVE: CASE EVENT DATE: 20151101
